FAERS Safety Report 16122475 (Version 1)
Quarter: 2019Q2

REPORT INFORMATION
  Report Type: Spontaneous
  Country: US (occurrence: US)
  Receive Date: 20190326
  Receipt Date: 20190326
  Transmission Date: 20190711
  Serious: No
  Sender: FDA-Public Use
  Company Number: None

PATIENT
  Age: 29 Year
  Sex: Male
  Weight: 99 kg

DRUGS (1)
  1. INVEGA SUSTENNA [Suspect]
     Active Substance: PALIPERIDONE PALMITATE
     Indication: POST-TRAUMATIC STRESS DISORDER
     Route: 030
     Dates: start: 20181203, end: 20181210

REACTIONS (12)
  - Insomnia [None]
  - Blepharospasm [None]
  - Gait disturbance [None]
  - Ejaculation failure [None]
  - Depression [None]
  - Suicidal ideation [None]
  - Restlessness [None]
  - Tremor [None]
  - Abdominal pain [None]
  - Crying [None]
  - Emotional poverty [None]
  - Constipation [None]

NARRATIVE: CASE EVENT DATE: 20181204
